FAERS Safety Report 5078408-3 (Version None)
Quarter: 2006Q3

REPORT INFORMATION
  Report Type: 
  Country: None (occurrence: None)
  Receive Date: 20060808
  Receipt Date: 20060719
  Transmission Date: 20061208
  Serious: Yes (Hospitalization)
  Sender: FDA-Public Use
  Company Number: DE200607000055

PATIENT
  Age: 60 Year
  Sex: Female

DRUGS (4)
  1. CYMBALTA [Suspect]
     Indication: SCHIZOAFFECTIVE DISORDER
     Dosage: SEE IMAGE
     Route: 048
     Dates: start: 20060515
  2. CLOZAPIN (CLOZAPINE) [Concomitant]
  3. HALDOL [Concomitant]
  4. TRILEPTAL [Concomitant]

REACTIONS (2)
  - DELIRIUM [None]
  - GRAND MAL CONVULSION [None]
